APPROVED DRUG PRODUCT: SODIUM FLUORIDE F 18
Active Ingredient: SODIUM FLUORIDE F-18
Strength: 10-200mCi/ML **Federal Register determination that product was not discontinued or withdrawn for safety or effectiveness reasons**
Dosage Form/Route: INJECTABLE;INTRAVENOUS
Application: N022494 | Product #001
Applicant: NATIONAL INSTITUTES HEALTH NATIONAL CANCER INSTITUTE DIV CANCER TREATMENT AND DIAGNOSIS
Approved: Jan 26, 2011 | RLD: Yes | RS: No | Type: DISCN